FAERS Safety Report 6069761-2 (Version None)
Quarter: 2009Q1

REPORT INFORMATION
  Report Type: 
  Country: None (occurrence: None)
  Receive Date: 20090209
  Receipt Date: 20090128
  Transmission Date: 20090719
  Serious: Yes (Hospitalization, Other)
  Sender: FDA-Public Use
  Company Number: US-PFIZER INC-2007058285

PATIENT
  Sex: Female
  Weight: 49 kg

DRUGS (6)
  1. CHANTIX [Suspect]
     Dosage: UNK
     Dates: start: 20070321, end: 20070402
  2. HYDROCODONE [Concomitant]
  3. LEXAPRO [Concomitant]
  4. ACETYLSALICYLIC ACID [Concomitant]
  5. SIMVASTATIN [Concomitant]
  6. INSULIN [Concomitant]
     Indication: DIABETES MELLITUS

REACTIONS (10)
  - BLOOD GLUCOSE INCREASED [None]
  - DEPRESSION [None]
  - DIARRHOEA [None]
  - DRUG INEFFECTIVE [None]
  - DYSPNOEA [None]
  - GASTRIC DISORDER [None]
  - HOT FLUSH [None]
  - LIVER DISORDER [None]
  - NAUSEA [None]
  - WEIGHT INCREASED [None]
